FAERS Safety Report 12632153 (Version 2)
Quarter: 2016Q3

REPORT INFORMATION
  Report Type: Spontaneous
  Country: US (occurrence: US)
  Receive Date: 20160808
  Receipt Date: 20160808
  Transmission Date: 20161109
  Serious: No
  Sender: FDA-Public Use
  Company Number: US-BEH-2016061995

PATIENT
  Sex: Female
  Weight: 74 kg

DRUGS (16)
  1. HIZENTRA [Suspect]
     Active Substance: HUMAN IMMUNOGLOBULIN G
     Indication: IMMUNODEFICIENCY COMMON VARIABLE
     Route: 058
     Dates: start: 20150204
  2. SPIRONOLACTONE. [Concomitant]
     Active Substance: SPIRONOLACTONE
  3. MONTELUKAST [Concomitant]
     Active Substance: MONTELUKAST SODIUM
  4. ACETAMINOPHEN. [Concomitant]
     Active Substance: ACETAMINOPHEN
  5. LIDOCAINE. [Concomitant]
     Active Substance: LIDOCAINE
  6. CENTRUM SILVER [Concomitant]
     Active Substance: MINERALS\VITAMINS
  7. LEVABUTEROL [Concomitant]
  8. DIPHENHYDRAMINE. [Concomitant]
     Active Substance: DIPHENHYDRAMINE
  9. EPIPEN [Concomitant]
     Active Substance: EPINEPHRINE
  10. AMIODARONE [Concomitant]
     Active Substance: AMIODARONE
  11. VITAMIN D [Concomitant]
     Active Substance: CHOLECALCIFEROL
  12. VERAPAMIL [Concomitant]
     Active Substance: VERAPAMIL HYDROCHLORIDE
  13. FAMOTIDINE. [Concomitant]
     Active Substance: FAMOTIDINE
  14. CALCIUM [Concomitant]
     Active Substance: CALCIUM
  15. FUROSEMIDE. [Concomitant]
     Active Substance: FUROSEMIDE
  16. AZITHROMYCIN ANHYDROUS. [Concomitant]
     Active Substance: AZITHROMYCIN ANHYDROUS

REACTIONS (1)
  - Nasopharyngitis [Unknown]
